FAERS Safety Report 6240410-3 (Version None)
Quarter: 2009Q2

REPORT INFORMATION
  Report Type: 
  Country: None (occurrence: None)
  Receive Date: 20090618
  Receipt Date: 20090618
  Transmission Date: 20091009
  Serious: Yes (Life-Threatening, Hospitalization, Disabling, Other)
  Sender: FDA-Public Use
  Company Number: None

PATIENT
  Age: 76 Year
  Sex: Male
  Weight: 79.8331 kg

DRUGS (2)
  1. COUMADIN [Suspect]
     Indication: ATRIAL FIBRILLATION
     Dosage: 10 MG DAILY PO
     Route: 048
     Dates: start: 20090208, end: 20090311
  2. BACTRIM [Suspect]
     Indication: INFECTION
     Dosage: DOUBLE STRENGHT BID PO
     Route: 048
     Dates: start: 20090305, end: 20090311

REACTIONS (4)
  - CEREBRAL HAEMORRHAGE [None]
  - INFECTION [None]
  - SUBDURAL HAEMATOMA [None]
  - UNRESPONSIVE TO STIMULI [None]
